FAERS Safety Report 20158552 (Version 1)
Quarter: 2021Q4

REPORT INFORMATION
  Report Type: Spontaneous
  Country: US (occurrence: US)
  Receive Date: 20211207
  Receipt Date: 20211207
  Transmission Date: 20220303
  Serious: Yes (Hospitalization, Other)
  Sender: FDA-Public Use
  Company Number: US-REGENERON PHARMACEUTICALS, INC.-2021-112105

PATIENT

DRUGS (1)
  1. LIBTAYO [Suspect]
     Active Substance: CEMIPLIMAB-RWLC
     Indication: Squamous cell carcinoma
     Dosage: UNK, Q3W
     Dates: start: 202102, end: 20210809

REACTIONS (12)
  - Fall [Unknown]
  - Nausea [Unknown]
  - Dehydration [Unknown]
  - Pneumonia [Unknown]
  - Choking [Unknown]
  - Cystitis [Unknown]
  - COVID-19 [Unknown]
  - Decreased appetite [Unknown]
  - Bone pain [Unknown]
  - Asthenia [Unknown]
  - Pyrexia [Unknown]
  - Infusion site extravasation [Unknown]

NARRATIVE: CASE EVENT DATE: 20210801
